FAERS Safety Report 4601735-8 (Version None)
Quarter: 2005Q1

REPORT INFORMATION
  Report Type: 
  Country: None (occurrence: None)
  Receive Date: 20050128
  Receipt Date: 20041102
  Transmission Date: 20050727
  Serious: Yes (Disabling)
  Sender: FDA-Public Use
  Company Number: WAES 0408USA01024

PATIENT
  Age: 46 Year
  Sex: Female

DRUGS (8)
  1. EMEND [Suspect]
     Indication: CHEMOTHERAPY
     Dosage: 125 MG/ 1X/ PO
     Route: 048
     Dates: start: 20040710, end: 20040710
  2. EMEND [Suspect]
     Indication: PROPHYLAXIS
     Dosage: 125 MG/ 1X/ PO
     Route: 048
     Dates: start: 20040710, end: 20040710
  3. EMEND [Suspect]
     Indication: PROPHYLAXIS OF NAUSEA AND VOMITING
     Dosage: 80 MG/ DAILY/ PO
     Route: 048
     Dates: start: 20040711, end: 20040712
  4. DIFLUCAN [Concomitant]
  5. ZOFRAN [Concomitant]
  6. THERAPY UNSPECIFIED [Concomitant]
  7. DEXAMETHASONE [Concomitant]
  8. LORAZEPAM [Concomitant]

REACTIONS (1)
  - COUGH [None]
